FAERS Safety Report 5808643-5 (Version None)
Quarter: 2008Q3

REPORT INFORMATION
  Report Type: 
  Country: None (occurrence: None)
  Receive Date: 20080714
  Receipt Date: 20080707
  Transmission Date: 20090109
  Serious: Yes (Hospitalization)
  Sender: FDA-Public Use
  Company Number: JP-EISAI MEDICAL RESEARCH-E2090-00487-SPO-JP

PATIENT
  Sex: Female
  Weight: 45.8 kg

DRUGS (4)
  1. EXCEGRAN [Suspect]
     Indication: TRIGEMINAL NEURALGIA
     Route: 048
     Dates: start: 20080527, end: 20080610
  2. TRYPTANOL [Concomitant]
     Indication: TRIGEMINAL NEURALGIA
     Route: 048
     Dates: start: 20070821, end: 20080610
  3. MEILAX [Concomitant]
     Indication: TRIGEMINAL NEURALGIA
     Route: 048
     Dates: start: 20070821, end: 20080512
  4. SOLANAX [Concomitant]
     Indication: TRIGEMINAL NEURALGIA
     Route: 048
     Dates: start: 20080513

REACTIONS (3)
  - AGRANULOCYTOSIS [None]
  - STOMATITIS [None]
  - THROMBOCYTOPENIA [None]
